FAERS Safety Report 19440612 (Version 2)
Quarter: 2021Q2

REPORT INFORMATION
  Report Type: Report from Study
  Country: None (occurrence: BR)
  Receive Date: 20210621
  Receipt Date: 20210622
  Transmission Date: 20210717
  Serious: Yes (Other)
  Sender: FDA-Public Use
  Company Number: BR-ABBVIE-21K-020-3953287-00

PATIENT
  Sex: Female
  Weight: 69 kg

DRUGS (4)
  1. SKYRIZI [Suspect]
     Active Substance: RISANKIZUMAB-RZAA
     Route: 058
     Dates: start: 2021
  2. SALINE [Suspect]
     Active Substance: SODIUM CHLORIDE
     Indication: LIMB OPERATION
     Dosage: SOLUTION
     Route: 065
     Dates: start: 202105
  3. SKYRIZI [Suspect]
     Active Substance: RISANKIZUMAB-RZAA
     Dosage: LOADING DOSE ? WEEK 04
     Route: 058
     Dates: start: 202102, end: 202102
  4. SKYRIZI [Suspect]
     Active Substance: RISANKIZUMAB-RZAA
     Indication: PSORIASIS
     Dosage: LOADING DOSE ? WEEK 00
     Route: 058
     Dates: start: 20210104, end: 20210104

REACTIONS (11)
  - Drug ineffective [Unknown]
  - Local reaction [Unknown]
  - Psoriasis [Not Recovered/Not Resolved]
  - Fall [Recovering/Resolving]
  - Balance disorder [Unknown]
  - Pruritus [Not Recovered/Not Resolved]
  - Asthma [Unknown]
  - Open fracture [Recovering/Resolving]
  - Scab [Not Recovered/Not Resolved]
  - Limb injury [Not Recovered/Not Resolved]
  - Procedural pain [Not Recovered/Not Resolved]

NARRATIVE: CASE EVENT DATE: 2021
